FAERS Safety Report 5175725-3 (Version None)
Quarter: 2006Q4

REPORT INFORMATION
  Report Type: 
  Country: None (occurrence: None)
  Receive Date: 20061211
  Receipt Date: 20061211
  Transmission Date: 20070319
  Serious: No
  Sender: FDA-Public Use
  Company Number: None

PATIENT
  Age: 48 Year
  Sex: Female
  Weight: 95.2554 kg

DRUGS (1)
  1. ALPRAZOLAM [Suspect]
     Indication: ANXIETY
     Dosage: 2 MG 1 TIME DAILY PO
     Route: 048
     Dates: start: 20061209, end: 20061209

REACTIONS (2)
  - DRUG INEFFECTIVE [None]
  - POOR QUALITY DRUG ADMINISTERED [None]
